FAERS Safety Report 8323008-2 (Version None)
Quarter: 2012Q2

REPORT INFORMATION
  Report Type: 
  Country: None (occurrence: None)
  Receive Date: 20120430
  Receipt Date: 20120427
  Transmission Date: 20120825
  Serious: Yes (Hospitalization)
  Sender: FDA-Public Use
  Company Number: IT-BAYER-2012-041663

PATIENT
  Age: 76 Year
  Sex: Male

DRUGS (8)
  1. LASIX [Concomitant]
     Dosage: 25 MG, UNK
     Route: 048
  2. RABEPRAZOLE SODIUM [Concomitant]
     Dosage: 10 MG, UNK
     Route: 048
  3. ENALAPRIL MALEATE [Concomitant]
     Dosage: 5 MG, UNK
     Route: 048
  4. CORDARONE [Concomitant]
     Dosage: 200 MG, UNK
     Route: 048
  5. COUMADIN [Suspect]
     Indication: CORONARY ARTERY DISEASE
     Dosage: 5 MG, QD
     Route: 048
     Dates: start: 20111207, end: 20120408
  6. DAXAS [Concomitant]
     Dosage: 500 ?G, UNK
     Route: 048
  7. ASPIRIN [Suspect]
     Indication: CORONARY ARTERY DISEASE
     Dosage: 100 MG, QD
     Route: 048
     Dates: start: 20111207, end: 20120408
  8. LASIX [Concomitant]
     Route: 042

REACTIONS (2)
  - ANAEMIA [None]
  - EPISTAXIS [None]
